FAERS Safety Report 7321345-1 (Version None)
Quarter: 2011Q1

REPORT INFORMATION
  Report Type: 
  Country: None (occurrence: None)
  Receive Date: 20110228
  Receipt Date: 20100305
  Transmission Date: 20110831
  Serious: Yes (Other)
  Sender: FDA-Public Use
  Company Number: US-PFIZER INC-2010011044

PATIENT
  Sex: Male

DRUGS (4)
  1. GEODON [Suspect]
     Indication: SCHIZOPHRENIA
     Dosage: 60 MG, 2X/DAY
     Dates: start: 20040401
  2. DEPAKOTE [Concomitant]
     Dosage: UNIT DOSE: 1000
     Dates: start: 20040401
  3. GEODON [Suspect]
     Dosage: 120 MG, UNK
  4. GEODON [Suspect]
     Dosage: 80 MG, UNK

REACTIONS (1)
  - TARDIVE DYSKINESIA [None]
